FAERS Safety Report 7011062-X (Version None)
Quarter: 2010Q3

REPORT INFORMATION
  Report Type: 
  Country: None (occurrence: None)
  Receive Date: 20100922
  Receipt Date: 20100922
  Transmission Date: 20110219
  Serious: Yes (Other)
  Sender: FDA-Public Use
  Company Number: None

PATIENT
  Age: 47 Year
  Sex: Female
  Weight: 93.8946 kg

DRUGS (1)
  1. CYMBALTA [Suspect]
     Indication: NEURALGIA
     Dosage: ONE CAPSYLE DAILY PO
     Route: 048

REACTIONS (5)
  - DRUG DEPENDENCE [None]
  - DRUG DOSE OMISSION [None]
  - HEADACHE [None]
  - NAUSEA [None]
  - NECK PAIN [None]
